FAERS Safety Report 22237396 (Version 1)
Quarter: 2023Q2

REPORT INFORMATION
  Report Type: Report from Study
  Country: US (occurrence: US)
  Receive Date: 20230421
  Receipt Date: 20230421
  Transmission Date: 20230722
  Serious: Yes (Hospitalization, Other)
  Sender: FDA-Public Use
  Company Number: US-BRISTOL-MYERS SQUIBB COMPANY-2022-085042

PATIENT
  Age: 52 Year
  Sex: Male

DRUGS (3)
  1. IPILIMUMAB [Suspect]
     Active Substance: IPILIMUMAB
     Indication: Adenocarcinoma of colon
     Dates: start: 201902, end: 201905
  2. NIVOLUMAB [Suspect]
     Active Substance: NIVOLUMAB
     Indication: Adenocarcinoma of colon
     Dates: start: 201905, end: 201912
  3. NIVOLUMAB [Suspect]
     Active Substance: NIVOLUMAB
     Dates: start: 201902, end: 201905

REACTIONS (4)
  - Immune-mediated lung disease [Recovering/Resolving]
  - Immune-mediated hypophysitis [Recovering/Resolving]
  - Myelitis transverse [Recovering/Resolving]
  - Immune-mediated thyroiditis [Recovering/Resolving]

NARRATIVE: CASE EVENT DATE: 20190701
